FAERS Safety Report 16300598 (Version 2)
Quarter: 2021Q1

REPORT INFORMATION
  Report Type: Spontaneous
  Country: US (occurrence: US)
  Receive Date: 20190510
  Receipt Date: 20210120
  Transmission Date: 20210419
  Serious: Yes (Other)
  Sender: FDA-Public Use
  Company Number: US-ASTRAZENECA-2019SE63840

PATIENT
  Age: 38 Year
  Sex: Female
  Weight: 68 kg

DRUGS (36)
  1. NEXIUM [Suspect]
     Active Substance: ESOMEPRAZOLE MAGNESIUM
     Indication: GASTROOESOPHAGEAL REFLUX DISEASE
     Route: 048
     Dates: start: 201402, end: 201608
  2. IBUPROFEN. [Concomitant]
     Active Substance: IBUPROFEN
  3. TIZANIDINE. [Concomitant]
     Active Substance: TIZANIDINE
  4. NEXIUM [Suspect]
     Active Substance: ESOMEPRAZOLE MAGNESIUM
     Indication: GASTROOESOPHAGEAL REFLUX DISEASE
     Route: 048
     Dates: start: 2005, end: 2016
  5. PRILOSEC [Suspect]
     Active Substance: OMEPRAZOLE MAGNESIUM
     Indication: GASTROOESOPHAGEAL REFLUX DISEASE
     Dosage: GENERIC
     Route: 065
     Dates: start: 2011, end: 2012
  6. EPIPEN [Concomitant]
     Active Substance: EPINEPHRINE
  7. ADVAIR HFA [Concomitant]
     Active Substance: FLUTICASONE PROPIONATE\SALMETEROL XINAFOATE
  8. TRAMADOL. [Concomitant]
     Active Substance: TRAMADOL
  9. SULFAMETHOXAZOLE [Concomitant]
     Active Substance: SULFAMETHOXAZOLE
  10. NAPROXEN. [Concomitant]
     Active Substance: NAPROXEN
  11. BUSPIRONE [Concomitant]
     Active Substance: BUSPIRONE HYDROCHLORIDE
  12. NITROFURANTOIN. [Concomitant]
     Active Substance: NITROFURANTOIN
  13. BUSPIRONE HCL [Concomitant]
     Active Substance: BUSPIRONE HYDROCHLORIDE
     Indication: ANXIETY
     Dates: start: 20160501, end: 20161012
  14. VENTOLIN [Concomitant]
     Active Substance: ALBUTEROL SULFATE
  15. METRONIDAZOLE. [Concomitant]
     Active Substance: METRONIDAZOLE
  16. DICLOFENAC [Concomitant]
     Active Substance: DICLOFENAC
  17. PRILOSEC [Suspect]
     Active Substance: OMEPRAZOLE MAGNESIUM
     Indication: GASTROOESOPHAGEAL REFLUX DISEASE
     Route: 048
     Dates: start: 1999
  18. TIZANIDINE HCL [Concomitant]
     Active Substance: TIZANIDINE HYDROCHLORIDE
     Indication: PAIN
     Dates: start: 20160408, end: 20160831
  19. AMPHETAMINE [Concomitant]
     Active Substance: AMPHETAMINE
  20. AZITHROMYCIN ANHYDROUS. [Concomitant]
     Active Substance: AZITHROMYCIN ANHYDROUS
  21. LINZESS [Concomitant]
     Active Substance: LINACLOTIDE
  22. PREVACID [Suspect]
     Active Substance: LANSOPRAZOLE
     Indication: GASTROOESOPHAGEAL REFLUX DISEASE
     Route: 065
     Dates: start: 2000
  23. PROTONIX [Suspect]
     Active Substance: PANTOPRAZOLE SODIUM
     Indication: GASTROOESOPHAGEAL REFLUX DISEASE
     Route: 065
     Dates: start: 2000
  24. ROXICET [Concomitant]
     Active Substance: ACETAMINOPHEN\OXYCODONE HYDROCHLORIDE
  25. CLINDAMYCIN. [Concomitant]
     Active Substance: CLINDAMYCIN
  26. DOCUSATE SODIUM. [Concomitant]
     Active Substance: DOCUSATE SODIUM
  27. METHYLPREDNISOLONE. [Concomitant]
     Active Substance: METHYLPREDNISOLONE
  28. METAXALONE. [Concomitant]
     Active Substance: METAXALONE
  29. DIPHENHYDRAMINE. [Concomitant]
     Active Substance: DIPHENHYDRAMINE
  30. LIDOCAINE. [Concomitant]
     Active Substance: LIDOCAINE
  31. CLARITHROMYCIN. [Concomitant]
     Active Substance: CLARITHROMYCIN
  32. SERTRALINE [Concomitant]
     Active Substance: SERTRALINE HYDROCHLORIDE
  33. GABAPENTIN. [Concomitant]
     Active Substance: GABAPENTIN
  34. METHOCARBAMOL. [Concomitant]
     Active Substance: METHOCARBAMOL
  35. LORATADINE. [Concomitant]
     Active Substance: LORATADINE
  36. DIAZEPAM. [Concomitant]
     Active Substance: DIAZEPAM

REACTIONS (2)
  - Chronic kidney disease [Not Recovered/Not Resolved]
  - Acute kidney injury [Not Recovered/Not Resolved]

NARRATIVE: CASE EVENT DATE: 2014
